FAERS Safety Report 6115083-0 (Version None)
Quarter: 2009Q1

REPORT INFORMATION
  Report Type: 
  Country: None (occurrence: None)
  Receive Date: 20090313
  Receipt Date: 20090309
  Transmission Date: 20090719
  Serious: Yes (Hospitalization)
  Sender: FDA-Public Use
  Company Number: B0564042A

PATIENT
  Age: 29 Year
  Sex: Male

DRUGS (1)
  1. AUGMENTIN '125' [Suspect]
     Dosage: 1G SINGLE DOSE
     Route: 048
     Dates: start: 20081212, end: 20081212

REACTIONS (4)
  - DRUG HYPERSENSITIVITY [None]
  - FACE OEDEMA [None]
  - PRURITUS [None]
  - RASH MACULAR [None]
